FAERS Safety Report 9901741 (Version 1)
Quarter: 2014Q1

REPORT INFORMATION
  Report Type: Spontaneous
  Country: US (occurrence: US)
  Receive Date: 20140217
  Receipt Date: 20140217
  Transmission Date: 20141002
  Serious: Yes (Hospitalization)
  Sender: FDA-Public Use
  Company Number: PHHY2014US017061

PATIENT
  Age: 39 Year
  Sex: Female

DRUGS (2)
  1. 5-FLUOROURACIL [Suspect]
     Indication: ADENOCARCINOMA OF THE CERVIX
  2. CISPLATIN [Concomitant]
     Indication: ADENOCARCINOMA OF THE CERVIX

REACTIONS (6)
  - Coronary artery dissection [Recovered/Resolved]
  - Chest pain [Recovered/Resolved]
  - Bundle branch block right [Recovered/Resolved]
  - Myocardial infarction [Recovered/Resolved]
  - Dyspnoea [Recovered/Resolved]
  - Vomiting [Recovered/Resolved]
